FAERS Safety Report 7883179-9 (Version None)
Quarter: 2011Q4

REPORT INFORMATION
  Report Type: 
  Country: None (occurrence: None)
  Receive Date: 20111031
  Receipt Date: 20111017
  Transmission Date: 20120403
  Serious: Yes (Hospitalization)
  Sender: FDA-Public Use
  Company Number: FK201102289

PATIENT
  Age: 78 Year
  Sex: Female
  Weight: 79.8331 kg

DRUGS (12)
  1. VELCADE [Suspect]
     Indication: MULTIPLE MYELOMA
     Dosage: 2.4 MG, WEEKLY, INTRAVENOUS (NOT OTHERWISE SPECIFIED)
     Route: 042
     Dates: start: 20110707, end: 20110715
  2. GLIMEPRIMIDE [Concomitant]
  3. COUMADIN [Concomitant]
  4. GLUCOPHAGE [Concomitant]
  5. SIMVASTATIN [Concomitant]
  6. GABAPENTIN [Concomitant]
  7. LOTREL [Concomitant]
  8. COREG [Concomitant]
  9. COMBIVENT [Concomitant]
  10. DEXAMETHASONE SODIUM PHOSPHATE [Suspect]
     Indication: MULTIPLE MYELOMA
     Dosage: 10 MG, WEEKLY X 3 DOSES
     Dates: start: 20110707, end: 20110715
  11. NEXIUM [Concomitant]
  12. BONIVA [Concomitant]

REACTIONS (6)
  - HYPERKALAEMIA [None]
  - HYPERGLYCAEMIA [None]
  - RENAL FAILURE ACUTE [None]
  - ASTHENIA [None]
  - CHEST PAIN [None]
  - DRUG ERUPTION [None]
